FAERS Safety Report 9481917 (Version 1)
Quarter: 2013Q3

REPORT INFORMATION
  Report Type: Spontaneous
  Country: US (occurrence: None)
  Receive Date: 20130823
  Receipt Date: 20130823
  Transmission Date: 20140515
  Serious: Yes (Life-Threatening, Hospitalization)
  Sender: FDA-Public Use
  Company Number: 1713747-2013-99936

PATIENT
  Age: 69 Year
  Sex: Female
  Weight: 58.6 kg

DRUGS (5)
  1. SALINE [Suspect]
     Indication: HAEMODIALYSIS
  2. SALINE [Suspect]
     Indication: RENAL FAILURE CHRONIC
  3. FRESENIIUS DEMODIALYSIS MACHINE [Concomitant]
  4. FRESENIUS TUBING [Concomitant]
  5. FRESENIUS DIALYZER, CONCENTRATES [Concomitant]

REACTIONS (1)
  - Unresponsive to stimuli [None]
